FAERS Safety Report 9227964 (Version 1)
Quarter: 2013Q2

REPORT INFORMATION
  Report Type: Spontaneous
  Country: AU (occurrence: AU)
  Receive Date: 20130412
  Receipt Date: 20130412
  Transmission Date: 20140414
  Serious: Yes (Hospitalization, Other)
  Sender: FDA-Public Use
  Company Number: AU-ROCHE-1204025

PATIENT
  Age: 61 Year
  Sex: Female

DRUGS (3)
  1. PERTUZUMAB [Suspect]
     Indication: BREAST CANCER METASTATIC
     Route: 042
     Dates: start: 20130221, end: 20130221
  2. HERCEPTIN [Concomitant]
     Indication: BREAST CANCER METASTATIC
     Route: 042
     Dates: start: 2009
  3. ZOLEDRONIC ACID [Concomitant]
     Indication: BREAST CANCER METASTATIC
     Route: 042
     Dates: start: 2009

REACTIONS (3)
  - Diarrhoea [Recovering/Resolving]
  - Mucosal inflammation [Recovering/Resolving]
  - Disease progression [Unknown]
